FAERS Safety Report 11125975 (Version 1)
Quarter: 2015Q2

REPORT INFORMATION
  Report Type: Spontaneous
  Country: US (occurrence: US)
  Receive Date: 20150520
  Receipt Date: 20150520
  Transmission Date: 20150821
  Serious: No
  Sender: FDA-Public Use
  Company Number: US-GLAXOSMITHKLINE-US2015GSK068794

PATIENT
  Sex: Female

DRUGS (1)
  1. VENTOLIN HFA [Suspect]
     Active Substance: ALBUTEROL SULFATE
     Indication: DYSPNOEA
     Dosage: 3 PUFF(S), PRN
     Route: 055

REACTIONS (4)
  - Asthma [Recovered/Resolved]
  - Device use error [Unknown]
  - Sensitivity to weather change [Unknown]
  - Dyspnoea [Recovered/Resolved]
